FAERS Safety Report 5274839-7 (Version None)
Quarter: 2007Q1

REPORT INFORMATION
  Report Type: 
  Country: None (occurrence: None)
  Receive Date: 20061208
  Receipt Date: 20051028
  Transmission Date: 20070707
  Serious: No
  Sender: FDA-Public Use
  Company Number: 2005UW16342

PATIENT
  Sex: Male

DRUGS (7)
  1. CRESTOR [Suspect]
     Dosage: 10 MG QD PO
     Route: 048
  2. BENICAR HCT [Concomitant]
  3. ACTOS [Concomitant]
  4. AMARYL [Concomitant]
  5. LOPRESSOR [Concomitant]
  6. LEVITRA [Concomitant]
  7. ALLEGRA [Concomitant]

REACTIONS (1)
  - MUSCULOSKELETAL STIFFNESS [None]
